FAERS Safety Report 8919367 (Version 1)
Quarter: 2012Q4

REPORT INFORMATION
  Report Type: 
  Country: AU (occurrence: AU)
  Receive Date: 20121121
  Receipt Date: 20121121
  Transmission Date: 20130627
  Serious: Yes (Death, Hospitalization, Other)
  Sender: FDA-Public Use
  Company Number: AU-GILEAD-2012-0064876

PATIENT
  Age: 37 Year
  Sex: Female

DRUGS (11)
  1. AMBRISENTAN [Suspect]
     Indication: PULMONARY HYPERTENSION
     Dosage: 10 mg, QD
     Route: 048
     Dates: start: 20070802
  2. REVATIO [Suspect]
     Indication: PRODUCT USED FOR UNKNOWN INDICATION
     Dosage: UNK
     Route: 065
     Dates: start: 20110125
  3. REVATIO [Suspect]
     Dosage: UNK
  4. WARFARIN [Concomitant]
     Indication: PULMONARY ARTERIAL HYPERTENSION
     Dosage: UNK
     Dates: start: 19940902
  5. SPIRONOLACTONE [Concomitant]
     Indication: FLUID RETENTION
     Dates: start: 20071013
  6. MORPHINE [Concomitant]
     Indication: PAIN
  7. OMEPRAZOLE [Concomitant]
     Indication: ILL-DEFINED DISORDER
     Dosage: 200MG Twice per day
  8. POTASSIUM CHLORIDE [Concomitant]
     Indication: ELECTROLYTE SUBSTITUTION THERAPY
     Dosage: 600MG Twice per day
     Dates: start: 20070210
  9. FUROSEMIDE [Concomitant]
     Dosage: 80MG Twice per day
     Dates: start: 20070502
  10. VENLAFAXINE HYDROCHLORIDE [Concomitant]
     Dosage: 225 mg, QD
     Dates: start: 20070305
  11. OXAZEPAM [Concomitant]
     Dosage: 30MG At night
     Dates: start: 20120116

REACTIONS (8)
  - Cardiogenic shock [Fatal]
  - Pulmonary hypertension [Unknown]
  - Fall [Unknown]
  - Foot fracture [Unknown]
  - Oxygen saturation decreased [Unknown]
  - Hypoglycaemia [Unknown]
  - Ill-defined disorder [Unknown]
  - Ill-defined disorder [Unknown]
